FAERS Safety Report 21586633 (Version 2)
Quarter: 2023Q4

REPORT INFORMATION
  Report Type: Report from Study
  Country: US (occurrence: US)
  Receive Date: 20221113
  Receipt Date: 20231006
  Transmission Date: 20240109
  Serious: Yes (Other)
  Sender: FDA-Public Use
  Company Number: US-SA-SAC20221109000578

PATIENT
  Age: 50 Year
  Sex: Female

DRUGS (1)
  1. ALEMTUZUMAB [Suspect]
     Active Substance: ALEMTUZUMAB
     Indication: Relapsing multiple sclerosis
     Dosage: UNK
     Route: 041
     Dates: start: 20180423, end: 20180427

REACTIONS (1)
  - Graves^ disease [Unknown]

NARRATIVE: CASE EVENT DATE: 20220101
